FAERS Safety Report 20215007 (Version 1)
Quarter: 2021Q4

REPORT INFORMATION
  Report Type: Spontaneous
  Country: CA (occurrence: CA)
  Receive Date: 20211222
  Receipt Date: 20211222
  Transmission Date: 20220303
  Serious: Yes (Other)
  Sender: FDA-Public Use
  Company Number: CA-LUPIN PHARMACEUTICALS INC.-2021-25148

PATIENT
  Age: 63 Year
  Sex: Male

DRUGS (15)
  1. VORICONAZOLE [Suspect]
     Active Substance: VORICONAZOLE
     Indication: Antifungal prophylaxis
     Dosage: 10 MILLIGRAM PER MILLILITRE, HOURLY
     Route: 061
     Dates: start: 2019
  2. VORICONAZOLE [Suspect]
     Active Substance: VORICONAZOLE
     Dosage: UNK
     Route: 065
     Dates: start: 2019
  3. VORICONAZOLE [Suspect]
     Active Substance: VORICONAZOLE
     Dosage: 200 MILLIGRAM, BID
     Route: 048
  4. CASPOFUNGIN [Suspect]
     Active Substance: CASPOFUNGIN
     Indication: Keratitis
     Dosage: 5 MILLIGRAM PER MILLILITRE
     Route: 065
     Dates: start: 2019
  5. CASPOFUNGIN [Suspect]
     Active Substance: CASPOFUNGIN
     Indication: Fungal infection
  6. NATAMYCIN [Suspect]
     Active Substance: NATAMYCIN
     Indication: Keratitis
     Dosage: 50 MILLIGRAM PER MILLILITRE
     Route: 065
     Dates: start: 2019
  7. NATAMYCIN [Suspect]
     Active Substance: NATAMYCIN
     Indication: Fungal infection
  8. POSACONAZOLE [Suspect]
     Active Substance: POSACONAZOLE
     Indication: Keratitis
     Dosage: UNK
     Route: 048
     Dates: start: 2019
  9. POSACONAZOLE [Suspect]
     Active Substance: POSACONAZOLE
     Indication: Fungal infection
  10. MOXIFLOXACIN [Concomitant]
     Active Substance: MOXIFLOXACIN
     Indication: Antibiotic therapy
     Dosage: UNK
     Route: 061
     Dates: start: 2019
  11. CYCLOPENTOLATE [Concomitant]
     Active Substance: CYCLOPENTOLATE
     Indication: Drug therapy
     Dosage: UNK
     Route: 061
     Dates: start: 2019
  12. AMPHOTERICIN B [Concomitant]
     Active Substance: AMPHOTERICIN B
     Indication: Antifungal prophylaxis
     Dosage: 2 MILLIGRAM PER MILLILITRE
     Route: 061
     Dates: start: 2019, end: 2019
  13. METHAZOLAMIDE [Concomitant]
     Active Substance: METHAZOLAMIDE
     Indication: Ocular hypertension
     Dosage: 50 MILLIGRAM, TID
     Route: 048
     Dates: start: 2019
  14. BRIMONIDINE TARTRATE;TIMOLOL [Concomitant]
     Indication: Ocular hypertension
     Dosage: UNK
     Route: 061
     Dates: start: 2019
  15. BIMATOPROST [Concomitant]
     Active Substance: BIMATOPROST
     Indication: Ocular hypertension
     Dosage: UNK
     Route: 061
     Dates: start: 2019

REACTIONS (2)
  - Hepatotoxicity [Unknown]
  - Drug ineffective [Unknown]

NARRATIVE: CASE EVENT DATE: 20190101
